FAERS Safety Report 8306729-7 (Version None)
Quarter: 2012Q1

REPORT INFORMATION
  Report Type: 
  Country: None (occurrence: None)
  Receive Date: 20120327
  Receipt Date: 20090911
  Transmission Date: 20120608
  Serious: Yes (Other)
  Sender: FDA-Public Use
  Company Number: PHEH2009US10602

PATIENT
  Sex: Female

DRUGS (5)
  1. SPRYCEL [Suspect]
     Indication: CHRONIC MYELOID LEUKAEMIA
  2. GLEEVEC [Suspect]
     Indication: CHRONIC MYELOID LEUKAEMIA
     Dosage: 600 MG, QD, ORAL ; 400 MG QD ; 200 MG ; 400 MG
     Route: 048
     Dates: end: 20050901
  3. GLEEVEC [Suspect]
     Indication: CHRONIC MYELOID LEUKAEMIA
     Dosage: 600 MG, QD, ORAL ; 400 MG QD ; 200 MG ; 400 MG
     Route: 048
     Dates: start: 20050901, end: 20080301
  4. GLEEVEC [Suspect]
     Indication: CHRONIC MYELOID LEUKAEMIA
     Dosage: 600 MG, QD, ORAL ; 400 MG QD ; 200 MG ; 400 MG
     Route: 048
     Dates: start: 20010401
  5. GLEEVEC [Suspect]
     Indication: CHRONIC MYELOID LEUKAEMIA
     Dosage: 600 MG, QD, ORAL ; 400 MG QD ; 200 MG ; 400 MG
     Route: 048
     Dates: start: 20010101

REACTIONS (9)
  - DRUG RESISTANCE [None]
  - NAUSEA [None]
  - RED BLOOD CELL COUNT DECREASED [None]
  - GASTROOESOPHAGEAL REFLUX DISEASE [None]
  - WEIGHT INCREASED [None]
  - NEUTROPHIL COUNT DECREASED [None]
  - NEOPLASM MALIGNANT [None]
  - SWELLING [None]
  - DIARRHOEA [None]
